FAERS Safety Report 20085439 (Version 1)
Quarter: 2021Q4

REPORT INFORMATION
  Report Type: Spontaneous
  Country: US (occurrence: None)
  Receive Date: 20211117
  Receipt Date: 20211117
  Transmission Date: 20220303
  Serious: Yes (Death)
  Sender: FDA-Public Use
  Company Number: None

PATIENT
  Age: 77 Year
  Sex: Female

DRUGS (7)
  1. ENBREL [Suspect]
     Active Substance: ETANERCEPT
     Indication: Rheumatoid arthritis
     Dosage: FREQUENCY : WEEKLY;?
     Route: 058
     Dates: start: 20201231, end: 20211112
  2. BACLOFEN [Concomitant]
     Active Substance: BACLOFEN
  3. BUPRENORPHINE [Concomitant]
     Active Substance: BUPRENORPHINE
  4. BUSPIRONE [Concomitant]
     Active Substance: BUSPIRONE HYDROCHLORIDE
  5. CIPROFLOXACIN [Concomitant]
     Active Substance: CIPROFLOXACIN
  6. DEXILANT [Concomitant]
     Active Substance: DEXLANSOPRAZOLE
  7. DICYCLOMINE [Concomitant]
     Active Substance: DICYCLOMINE HYDROCHLORIDE

REACTIONS (1)
  - Death [None]

NARRATIVE: CASE EVENT DATE: 20211112
